FAERS Safety Report 10608289 (Version 1)
Quarter: 2014Q4

REPORT INFORMATION
  Report Type: Spontaneous
  Country: JP (occurrence: JP)
  Receive Date: 20141125
  Receipt Date: 20141125
  Transmission Date: 20150529
  Serious: Yes (Death)
  Sender: FDA-Public Use
  Company Number: JP-SA-2014SA157859

PATIENT
  Age: 80 Year
  Sex: Female

DRUGS (8)
  1. ELPLAT [Suspect]
     Active Substance: OXALIPLATIN
     Indication: COLON CANCER
     Route: 041
  2. TEPRENONE [Concomitant]
     Active Substance: TEPRENONE
  3. FLUOROURACIL. [Suspect]
     Active Substance: FLUOROURACIL
     Indication: COLON CANCER
     Route: 040
  4. CALCIUM LEVOFOLINATE [Suspect]
     Active Substance: LEVOLEUCOVORIN CALCIUM
     Indication: COLON CANCER
     Route: 041
  5. AVASTIN [Concomitant]
     Active Substance: BEVACIZUMAB
  6. BETAMETHASONE [Concomitant]
     Active Substance: BETAMETHASONE
  7. FLUOROURACIL. [Suspect]
     Active Substance: FLUOROURACIL
     Indication: COLON CANCER
     Dosage: ONCE IN TWO DAYS
     Route: 041
  8. BEZAFIBRATE [Concomitant]
     Active Substance: BEZAFIBRATE
     Dosage: SLOW RELEASE TABLET

REACTIONS (1)
  - Kounis syndrome [Fatal]

NARRATIVE: CASE EVENT DATE: 20140129
